FAERS Safety Report 9897368 (Version 3)
Quarter: 2014Q1

REPORT INFORMATION
  Report Type: Report from Study
  Country: US (occurrence: US)
  Receive Date: 20140214
  Receipt Date: 20140306
  Transmission Date: 20141002
  Serious: Yes (Other)
  Sender: FDA-Public Use
  Company Number: US-JNJFOC-20140110718

PATIENT
  Sex: Female
  Weight: 122.47 kg

DRUGS (6)
  1. REMICADE [Suspect]
     Indication: FIBROMYALGIA
     Route: 042
     Dates: start: 201310
  2. REMICADE [Suspect]
     Indication: FIBROMYALGIA
     Route: 042
     Dates: start: 201311
  3. REMICADE [Suspect]
     Indication: SACROILIITIS
     Route: 042
     Dates: start: 201310
  4. REMICADE [Suspect]
     Indication: SACROILIITIS
     Route: 042
     Dates: start: 201311
  5. REMICADE [Suspect]
     Indication: ANKYLOSING SPONDYLITIS
     Route: 042
     Dates: start: 201311
  6. REMICADE [Suspect]
     Indication: ANKYLOSING SPONDYLITIS
     Route: 042
     Dates: start: 201310

REACTIONS (6)
  - Upper respiratory tract infection [Recovered/Resolved]
  - Herpes zoster [Not Recovered/Not Resolved]
  - Vertigo [Unknown]
  - Off label use [Unknown]
  - Back pain [Unknown]
  - Arthralgia [Unknown]
